FAERS Safety Report 4718258-8 (Version None)
Quarter: 2005Q3

REPORT INFORMATION
  Report Type: 
  Country: None (occurrence: None)
  Receive Date: 20050714
  Receipt Date: 20040524
  Transmission Date: 20060218
  Serious: Yes (Hospitalization)
  Sender: FDA-Public Use
  Company Number: HQWYE128127MAY04

PATIENT
  Age: 53 Year
  Sex: Male
  Weight: 86.26 kg

DRUGS (2)
  1. ADVIL [Suspect]
     Indication: EXOSTOSIS
     Dosage: 3 CAPLETS THREE TIMES DAILY AS RECOMMENDED BY PHYSICIAN, ORAL
     Route: 048
     Dates: start: 20040505, end: 20040509
  2. VITAMIN E [Concomitant]

REACTIONS (3)
  - CONVULSION [None]
  - SWELLING FACE [None]
  - TONGUE ULCERATION [None]
